FAERS Safety Report 9475242 (Version 1)
Quarter: 2013Q3

REPORT INFORMATION
  Report Type: Spontaneous
  Country: US (occurrence: US)
  Receive Date: 20130825
  Receipt Date: 20130825
  Transmission Date: 20140515
  Serious: Yes (Other)
  Sender: FDA-Public Use
  Company Number: US-JNJFOC-20130806428

PATIENT
  Sex: Female

DRUGS (2)
  1. TYLENOL EXTRA STRENGTH ARTHRITIS [Suspect]
     Route: 065
  2. TYLENOL EXTRA STRENGTH ARTHRITIS [Suspect]
     Indication: PRODUCT USED FOR UNKNOWN INDICATION
     Route: 065

REACTIONS (1)
  - Neuralgia [Unknown]
